FAERS Safety Report 7084066-9 (Version None)
Quarter: 2010Q4

REPORT INFORMATION
  Report Type: 
  Country: None (occurrence: None)
  Receive Date: 20101104
  Receipt Date: 20100917
  Transmission Date: 20110411
  Serious: No
  Sender: FDA-Public Use
  Company Number: US-BAYER-201021499BCC

PATIENT
  Age: 75 Year
  Sex: Female
  Weight: 51 kg

DRUGS (8)
  1. ALEVE (CAPLET) [Suspect]
     Indication: PRODUCT USED FOR UNKNOWN INDICATION
     Dosage: TOTAL DAILY DOSE: 220 MG  UNIT DOSE: 220 MG
     Route: 048
     Dates: start: 20100914, end: 20100914
  2. ALEVE (CAPLET) [Suspect]
     Dosage: TOTAL DAILY DOSE: 220 MG  UNIT DOSE: 220 MG
     Route: 048
     Dates: start: 20100917
  3. IBUPROFEN [Concomitant]
     Route: 065
     Dates: start: 20100914
  4. VITAMINS [Concomitant]
     Indication: MEDICAL DIET
     Route: 065
  5. LEVOXYL [Concomitant]
     Route: 065
  6. SOLGAR [Concomitant]
     Route: 065
  7. COUNTRY LIFE CALCIUM [Concomitant]
     Route: 065
  8. MAGNESIUM [Concomitant]
     Route: 065

REACTIONS (3)
  - MALAISE [None]
  - NAUSEA [None]
  - PALPITATIONS [None]
